FAERS Safety Report 18562219 (Version 2)
Quarter: 2021Q1

REPORT INFORMATION
  Report Type: Spontaneous
  Country: US (occurrence: US)
  Receive Date: 20201130
  Receipt Date: 20210303
  Transmission Date: 20210419
  Serious: Yes (Hospitalization, Other)
  Sender: FDA-Public Use
  Company Number: US-LUNDBECK-DKLU3024539

PATIENT
  Age: 73 Year
  Sex: Female

DRUGS (1)
  1. NORTHERA [Suspect]
     Active Substance: DROXIDOPA
     Indication: AUTONOMIC NEUROPATHY
     Dosage: 1 CAPSULE 2?3 TIMES DAILY AS DIRECTED
     Route: 048
     Dates: start: 20190618

REACTIONS (5)
  - Dysphagia [Unknown]
  - Hip fracture [Unknown]
  - Fall [Unknown]
  - Hand fracture [Unknown]
  - Head injury [Unknown]
